FAERS Safety Report 13642128 (Version 4)
Quarter: 2017Q4

REPORT INFORMATION
  Report Type: Spontaneous
  Country: US (occurrence: US)
  Receive Date: 20170612
  Receipt Date: 20171006
  Transmission Date: 20180320
  Serious: Yes (Life-Threatening, Other)
  Sender: FDA-Public Use
  Company Number: US-PFIZER INC-2017248612

PATIENT
  Age: 64 Year
  Sex: Male

DRUGS (2)
  1. TWINJECT [Suspect]
     Active Substance: EPINEPHRINE
     Dosage: 0.3 UNK, UNK
  2. TWINJECT [Suspect]
     Active Substance: EPINEPHRINE
     Indication: ANAPHYLACTIC REACTION
     Dosage: 0.3 MG, UNK
     Route: 030
     Dates: start: 201703, end: 201703

REACTIONS (5)
  - Device failure [Recovered/Resolved]
  - Device use issue [Recovered/Resolved]
  - Needle issue [Recovered/Resolved]
  - Loss of consciousness [Recovered/Resolved]
  - Drug dose omission [Recovered/Resolved]

NARRATIVE: CASE EVENT DATE: 201703
